FAERS Safety Report 5452902-5 (Version None)
Quarter: 2007Q3

REPORT INFORMATION
  Report Type: 
  Country: None (occurrence: None)
  Receive Date: 20070914
  Receipt Date: 20070907
  Transmission Date: 20080115
  Serious: Yes (Life-Threatening)
  Sender: FDA-Public Use
  Company Number: B0481490A

PATIENT
  Age: 35 Year
  Sex: Female
  Weight: 76 kg

DRUGS (3)
  1. SERETIDE [Suspect]
     Dosage: 250MCG TWICE PER DAY
     Route: 055
     Dates: end: 20061206
  2. FOLIC ACID [Concomitant]
     Indication: PROPHYLAXIS
     Route: 065
     Dates: end: 20060629
  3. NASONEX [Concomitant]
     Route: 065
     Dates: end: 20061206

REACTIONS (3)
  - DELIVERY [None]
  - PRE-ECLAMPSIA [None]
  - PREMATURE LABOUR [None]
